FAERS Safety Report 4493613-2 (Version None)
Quarter: 2004Q3

REPORT INFORMATION
  Report Type: 
  Country: None (occurrence: None)
  Receive Date: 20040921
  Receipt Date: 20040115
  Transmission Date: 20050211
  Serious: Yes (Hospitalization)
  Sender: FDA-Public Use
  Company Number: 163-20785-04010364

PATIENT
  Age: 55 Year
  Sex: Female

DRUGS (6)
  1. THALOMID [Suspect]
     Indication: MULTIPLE MYELOMA
     Dosage: SEE IMAGE
     Route: 048
     Dates: start: 20010814, end: 20020722
  2. THALOMID [Suspect]
     Indication: MULTIPLE MYELOMA
     Dosage: SEE IMAGE
     Route: 048
     Dates: start: 20020821
  3. DOXIL [Suspect]
     Indication: MULTIPLE MYELOMA
     Dosage: 40 MG/M2, EVERY 28 DAYS, INTRAVENOUS
     Route: 042
     Dates: start: 20010814
  4. VINCRISTINE [Suspect]
     Indication: MULTIPLE MYELOMA
     Dosage: 2 MG, EVERY 28 DAYS, INTRAVENOUS
     Route: 042
     Dates: start: 20010814
  5. DECADRON [Suspect]
     Indication: MULTIPLE MYELOMA
     Dosage: 40 MG, DAILY FOR 4 DAYS, ORAL
     Route: 048
     Dates: start: 20010814
  6. PREDNISONE [Suspect]
     Indication: MULTIPLE MYELOMA
     Dosage: 50 MG, QOD
     Dates: start: 20020821

REACTIONS (4)
  - DISEASE PROGRESSION [None]
  - RADICULOPATHY [None]
  - SPINAL CORD COMPRESSION [None]
  - VERTEBRAL COLUMN MASS [None]
